FAERS Safety Report 7703411-1 (Version None)
Quarter: 2011Q3

REPORT INFORMATION
  Report Type: 
  Country: None (occurrence: None)
  Receive Date: 20110823
  Receipt Date: 20110823
  Transmission Date: 20111222
  Serious: Yes (Hospitalization)
  Sender: FDA-Public Use
  Company Number: None

PATIENT
  Sex: Female
  Weight: 88.9 kg

DRUGS (1)
  1. ISENTRESS [Suspect]
     Indication: ACQUIRED IMMUNODEFICIENCY SYNDROME
     Dosage: 400 MG
     Route: 048
     Dates: start: 20110801, end: 20110820

REACTIONS (5)
  - URTICARIA [None]
  - THROAT IRRITATION [None]
  - OEDEMA PERIPHERAL [None]
  - RASH PRURITIC [None]
  - LIP SWELLING [None]
